FAERS Safety Report 6248103-3 (Version None)
Quarter: 2009Q2

REPORT INFORMATION
  Report Type: 
  Country: None (occurrence: None)
  Receive Date: 20090629
  Receipt Date: 20090619
  Transmission Date: 20091009
  Serious: Yes (Other)
  Sender: FDA-Public Use
  Company Number: US-CELGENEUS-163-20785-09061626

PATIENT
  Sex: Male

DRUGS (2)
  1. THALOMID [Suspect]
     Indication: MULTIPLE MYELOMA
     Route: 048
     Dates: start: 20070901
  2. THALOMID [Suspect]
     Route: 048
     Dates: start: 20070501, end: 20070601

REACTIONS (2)
  - DISEASE PROGRESSION [None]
  - OSTEOMYELITIS [None]
